FAERS Safety Report 21644326 (Version 1)
Quarter: 2022Q4

REPORT INFORMATION
  Report Type: Spontaneous
  Country: JP (occurrence: None)
  Receive Date: 20221125
  Receipt Date: 20221125
  Transmission Date: 20230112
  Serious: Yes (Death, Other)
  Sender: FDA-Public Use
  Company Number: 2022A359517

PATIENT
  Age: 60 Year

DRUGS (1)
  1. IMFINZI [Suspect]
     Active Substance: DURVALUMAB
     Indication: Non-small cell lung cancer
     Route: 041
     Dates: start: 202005

REACTIONS (3)
  - Death [Fatal]
  - Pneumonitis [Recovering/Resolving]
  - Aspergillus infection [Unknown]

NARRATIVE: CASE EVENT DATE: 20220801
